FAERS Safety Report 5134277-4 (Version None)
Quarter: 2006Q4

REPORT INFORMATION
  Report Type: 
  Country: None (occurrence: None)
  Receive Date: 20061019
  Receipt Date: 20061011
  Transmission Date: 20070319
  Serious: Yes (Life-Threatening, Hospitalization)
  Sender: FDA-Public Use
  Company Number: SPVI-2006-01005

PATIENT
  Age: 47 Year
  Sex: Female

DRUGS (1)
  1. ANAGRELIDE HCL [Suspect]
     Indication: THROMBOCYTHAEMIA
     Dosage: 0.5 MG, ORAL
     Route: 048
     Dates: start: 20060206, end: 20061005

REACTIONS (2)
  - MITRAL VALVE INCOMPETENCE [None]
  - RESTRICTIVE CARDIOMYOPATHY [None]
